FAERS Safety Report 6462117-X (Version None)
Quarter: 2009Q4

REPORT INFORMATION
  Report Type: 
  Country: None (occurrence: None)
  Receive Date: 20091130
  Receipt Date: 20091120
  Transmission Date: 20100525
  Serious: Yes (Disabling, Other)
  Sender: FDA-Public Use
  Company Number: GXKR2006GB08146

PATIENT
  Sex: Female
  Weight: 60 kg

DRUGS (2)
  1. METRONIDAZOLE (NGX) [Suspect]
     Dosage: 200 MG, UNK
     Route: 048
     Dates: start: 20061023, end: 20061030
  2. HYDROXYCHLOROQUINE [Concomitant]
     Dosage: UNK
     Dates: end: 20060301

REACTIONS (1)
  - HEPATITIS [None]
